FAERS Safety Report 6693741-7 (Version None)
Quarter: 2010Q2

REPORT INFORMATION
  Report Type: 
  Country: None (occurrence: None)
  Receive Date: 20100423
  Receipt Date: 20090512
  Transmission Date: 20101027
  Serious: No
  Sender: FDA-Public Use
  Company Number: A0783749A

PATIENT
  Age: 45 Year
  Sex: Female

DRUGS (3)
  1. DEXEDRINE [Suspect]
     Indication: DEPRESSION
     Dosage: 30MG TWICE PER DAY
     Route: 048
     Dates: start: 20090426
  2. WELLBUTRIN [Concomitant]
  3. TOPAMAX [Concomitant]

REACTIONS (3)
  - EPISTAXIS [None]
  - NASAL DISCOMFORT [None]
  - NASAL DRYNESS [None]
